FAERS Safety Report 24150699 (Version 1)
Quarter: 2024Q3

REPORT INFORMATION
  Report Type: Report from Study
  Country: TR (occurrence: TR)
  Receive Date: 20240730
  Receipt Date: 20240730
  Transmission Date: 20241016
  Serious: Yes (Other)
  Sender: TEVA
  Company Number: TR-TEVA-VS-3214710

PATIENT
  Age: 38 Year
  Sex: Female

DRUGS (2)
  1. COPAXONE [Suspect]
     Active Substance: GLATIRAMER ACETATE
     Indication: Multiple sclerosis
     Route: 065
     Dates: start: 20231219, end: 20240521
  2. COPAXONE [Suspect]
     Active Substance: GLATIRAMER ACETATE
     Indication: Multiple sclerosis
     Dosage: TIME INTERVAL: 0.33333333 WEEKS
     Route: 065

REACTIONS (8)
  - Immediate post-injection reaction [Unknown]
  - Erythema [Unknown]
  - Dyspnoea [Unknown]
  - Swollen tongue [Recovered/Resolved]
  - Diarrhoea [Unknown]
  - Injection site pain [Unknown]
  - Pharyngeal erythema [Unknown]
  - Inappropriate schedule of product administration [Unknown]

NARRATIVE: CASE EVENT DATE: 20240101
